FAERS Safety Report 23529484 (Version 3)
Quarter: 2024Q1

REPORT INFORMATION
  Report Type: Spontaneous
  Country: IT (occurrence: IT)
  Receive Date: 20240216
  Receipt Date: 20240225
  Transmission Date: 20240410
  Serious: Yes (Death, Other)
  Sender: FDA-Public Use
  Company Number: None

PATIENT
  Age: 2 Month
  Sex: Male

DRUGS (4)
  1. AMBISOME [Suspect]
     Active Substance: AMPHOTERICIN B
     Indication: Systemic candida
     Dosage: 3 MG/KG
     Route: 065
     Dates: start: 2016
  2. CASPOFUNGIN [Suspect]
     Active Substance: CASPOFUNGIN
     Indication: Systemic candida
     Dosage: 2 MG/KG
     Route: 065
     Dates: start: 2016
  3. MICAFUNGIN [Suspect]
     Active Substance: MICAFUNGIN SODIUM
     Indication: Systemic candida
     Dosage: 2 MG/KG
     Route: 065
     Dates: start: 2016
  4. VORICONAZOLE [Suspect]
     Active Substance: VORICONAZOLE
     Indication: Systemic candida
     Dosage: 8 MG/KG
     Route: 065
     Dates: start: 2016

REACTIONS (1)
  - Drug ineffective [Fatal]

NARRATIVE: CASE EVENT DATE: 20160101
